FAERS Safety Report 7033923-8 (Version None)
Quarter: 2010Q4

REPORT INFORMATION
  Report Type: 
  Country: None (occurrence: None)
  Receive Date: 20101006
  Receipt Date: 20101004
  Transmission Date: 20110411
  Serious: Yes (Hospitalization, Other)
  Sender: FDA-Public Use
  Company Number: SP03153

PATIENT
  Age: 68 Year
  Sex: Female

DRUGS (1)
  1. MOVIPREP [Suspect]
     Indication: COLONOSCOPY
     Dosage: ORAL
     Route: 048
     Dates: start: 20100916, end: 20100916

REACTIONS (3)
  - CONVULSION [None]
  - HYPONATRAEMIA [None]
  - VOMITING [None]
